FAERS Safety Report 7527280-8 (Version None)
Quarter: 2011Q2

REPORT INFORMATION
  Report Type: 
  Country: None (occurrence: None)
  Receive Date: 20110603
  Receipt Date: 20110603
  Transmission Date: 20111010
  Serious: Yes (Death)
  Sender: FDA-Public Use
  Company Number: None

PATIENT

DRUGS (2)
  1. PROZAC [Suspect]
     Dosage: APPROX. TWO MONTHS
  2. ABILIFY [Suspect]

REACTIONS (6)
  - COMPLETED SUICIDE [None]
  - DECREASED APPETITE [None]
  - INSOMNIA [None]
  - DECREASED INTEREST [None]
  - FORMICATION [None]
  - DEPRESSION [None]
